FAERS Safety Report 17433126 (Version 3)
Quarter: 2021Q3

REPORT INFORMATION
  Report Type: Report from Study
  Country: None (occurrence: CA)
  Receive Date: 20200219
  Receipt Date: 20210724
  Transmission Date: 20211014
  Serious: Yes (Hospitalization, Other)
  Sender: FDA-Public Use
  Company Number: CA-ABBVIE-20K-028-3236260-00

PATIENT
  Age: 39 Year
  Sex: Male

DRUGS (2)
  1. HUMIRA [Suspect]
     Active Substance: ADALIMUMAB
     Indication: CROHN^S DISEASE
     Route: 058
     Dates: end: 2019
  2. HUMIRA [Suspect]
     Active Substance: ADALIMUMAB
     Route: 058
     Dates: start: 20190426

REACTIONS (19)
  - Intestinal obstruction [Recovered/Resolved]
  - Rash pruritic [Not Recovered/Not Resolved]
  - Abdominal pain [Recovered/Resolved]
  - Paraesthesia [Recovered/Resolved]
  - Nausea [Recovered/Resolved]
  - Intestinal stenosis [Unknown]
  - Injection site erythema [Unknown]
  - Injection site papule [Unknown]
  - Intestinal obstruction [Recovered/Resolved]
  - Injection site alopecia [Not Recovered/Not Resolved]
  - Vomiting [Recovered/Resolved]
  - Injection site pain [Unknown]
  - Eczema [Not Recovered/Not Resolved]
  - Scab [Not Recovered/Not Resolved]
  - Ingrown hair [Not Recovered/Not Resolved]
  - Acne [Not Recovered/Not Resolved]
  - Blood bilirubin increased [Unknown]
  - Hypoaesthesia [Unknown]
  - Gastrointestinal scarring [Unknown]

NARRATIVE: CASE EVENT DATE: 2019
